FAERS Safety Report 23381177 (Version 2)
Quarter: 2024Q1

REPORT INFORMATION
  Report Type: Spontaneous
  Country: US (occurrence: US)
  Receive Date: 20240109
  Receipt Date: 20240221
  Transmission Date: 20240410
  Serious: Yes (Other)
  Sender: FDA-Public Use
  Company Number: US-REGENERON PHARMACEUTICALS, INC.-2023-147657

PATIENT

DRUGS (1)
  1. EYLEA [Suspect]
     Active Substance: AFLIBERCEPT
     Indication: Product used for unknown indication
     Dosage: UNK (FORMULATION: PFS GERRESHEIMER; STRENGTH: 2MG/0.05 ML OR 40MG/ML)

REACTIONS (2)
  - Syringe issue [Unknown]
  - Wrong technique in device usage process [Unknown]
